FAERS Safety Report 8401677-6 (Version None)
Quarter: 2012Q2

REPORT INFORMATION
  Report Type: 
  Country: None (occurrence: None)
  Receive Date: 20120601
  Receipt Date: 20120517
  Transmission Date: 20120825
  Serious: Yes (Other)
  Sender: FDA-Public Use
  Company Number: MX-ASTELLAS-2012US005100

PATIENT

DRUGS (2)
  1. ERLOTINIB HYDROCHLORIDE [Suspect]
     Indication: HEAD AND NECK CANCER
     Dosage: 150 MG, UID/QD
     Route: 048
  2. TEMSIROLIMUS [Suspect]
     Indication: HEAD AND NECK CANCER
     Dosage: 15 MG, WEEKLY
     Route: 042

REACTIONS (2)
  - OFF LABEL USE [None]
  - NEUTROPENIA [None]
